FAERS Safety Report 17162665 (Version 1)
Quarter: 2019Q4

REPORT INFORMATION
  Report Type: Spontaneous
  Country: US (occurrence: US)
  Receive Date: 20191216
  Receipt Date: 20191216
  Transmission Date: 20200122
  Serious: No
  Sender: FDA-Public Use
  Company Number: None

PATIENT
  Age: 58 Year
  Sex: Female
  Weight: 63 kg

DRUGS (1)
  1. MOXIFLOXACIN OPHTHALMIC SOLUTION 0.5% 3ML [Suspect]
     Active Substance: MOXIFLOXACIN HYDROCHLORIDE
     Indication: CONJUNCTIVITIS
     Dosage: ?          QUANTITY:1 DROP(S);OTHER ROUTE:EYE DROP?
     Dates: start: 20191211, end: 20191212

REACTIONS (2)
  - Blepharitis [None]
  - Dermatitis [None]

NARRATIVE: CASE EVENT DATE: 20191212
